FAERS Safety Report 6245892-9 (Version None)
Quarter: 2009Q2

REPORT INFORMATION
  Report Type: 
  Country: None (occurrence: None)
  Receive Date: 20090626
  Receipt Date: 20090311
  Transmission Date: 20091009
  Serious: No
  Sender: FDA-Public Use
  Company Number: A0593044A

PATIENT
  Age: 45 Year
  Sex: Female

DRUGS (5)
  1. IMITREX [Suspect]
     Indication: MIGRAINE
     Route: 048
  2. TOPAMAX [Concomitant]
  3. VITAMIN B-12 [Concomitant]
  4. MAGNESIUM SULFATE [Concomitant]
  5. GABAPENTIN [Concomitant]
     Indication: MIGRAINE PROPHYLAXIS
     Dosage: 900MG TWICE PER DAY

REACTIONS (6)
  - DRUG INEFFECTIVE [None]
  - FEAR [None]
  - HEADACHE [None]
  - OVERDOSE [None]
  - THERAPEUTIC RESPONSE UNEXPECTED [None]
  - WRONG TECHNIQUE IN DRUG USAGE PROCESS [None]
